FAERS Safety Report 7122457-8 (Version None)
Quarter: 2010Q4

REPORT INFORMATION
  Report Type: 
  Country: None (occurrence: None)
  Receive Date: 20101124
  Receipt Date: 20101122
  Transmission Date: 20110411
  Serious: Yes (Death, Life-Threatening, Hospitalization)
  Sender: FDA-Public Use
  Company Number: GB-MERCK-1003GBR00154

PATIENT
  Age: 70 Year
  Sex: Male

DRUGS (3)
  1. ZOCOR [Suspect]
     Indication: HYPERCHOLESTEROLAEMIA
     Route: 048
  2. ERYTHROMYCIN [Suspect]
     Indication: LOWER RESPIRATORY TRACT INFECTION
     Route: 065
  3. CLARITHROMYCIN [Concomitant]
     Route: 065
     Dates: start: 20081208, end: 20081209

REACTIONS (24)
  - ALANINE AMINOTRANSFERASE INCREASED [None]
  - ANURIA [None]
  - ASTHENIA [None]
  - BLOOD CREATINE PHOSPHOKINASE INCREASED [None]
  - BLOOD URINE PRESENT [None]
  - COGNITIVE DISORDER [None]
  - DEVICE RELATED SEPSIS [None]
  - DISEASE PROGRESSION [None]
  - DRUG INTERACTION [None]
  - DYSPNOEA [None]
  - FLUID OVERLOAD [None]
  - GENERAL PHYSICAL HEALTH DETERIORATION [None]
  - HAEMODIALYSIS [None]
  - HYPOREFLEXIA [None]
  - MOVEMENT DISORDER [None]
  - MUSCULAR WEAKNESS [None]
  - MYALGIA [None]
  - MYOGLOBINURIA [None]
  - MYOSITIS [None]
  - NECROSIS [None]
  - RENAL FAILURE [None]
  - RHABDOMYOLYSIS [None]
  - SEPSIS [None]
  - UNRESPONSIVE TO STIMULI [None]
